FAERS Safety Report 25984905 (Version 1)
Quarter: 2025Q4

REPORT INFORMATION
  Report Type: Spontaneous
  Country: US (occurrence: US)
  Receive Date: 20251031
  Receipt Date: 20251031
  Transmission Date: 20260117
  Serious: Yes (Death)
  Sender: Kenvue
  Company Number: US-KENVUE-20251009650

PATIENT

DRUGS (2)
  1. LIDOCAINE HYDROCHLORIDE [Suspect]
     Active Substance: LIDOCAINE HYDROCHLORIDE
     Indication: Thermal burn
     Dosage: UNK
     Route: 061
  2. LIDOCAINE HYDROCHLORIDE [Suspect]
     Active Substance: LIDOCAINE HYDROCHLORIDE
     Indication: Accidental overdose

REACTIONS (2)
  - Accidental overdose [Fatal]
  - Product use in unapproved indication [Fatal]
